APPROVED DRUG PRODUCT: CALDEROL
Active Ingredient: CALCIFEDIOL
Strength: 0.05MG
Dosage Form/Route: CAPSULE;ORAL
Application: N018312 | Product #002
Applicant: ORGANON USA INC
Approved: Approved Prior to Jan 1, 1982 | RLD: No | RS: No | Type: DISCN